FAERS Safety Report 21395371 (Version 1)
Quarter: 2022Q3

REPORT INFORMATION
  Report Type: Report from Study
  Country: US (occurrence: US)
  Receive Date: 20220930
  Receipt Date: 20220930
  Transmission Date: 20221027
  Serious: Yes (Hospitalization)
  Sender: FDA-Public Use
  Company Number: US-UCBSA-2022057054

PATIENT
  Age: 4 Year
  Sex: Female

DRUGS (1)
  1. FENFLURAMINE HYDROCHLORIDE [Suspect]
     Active Substance: FENFLURAMINE HYDROCHLORIDE
     Indication: Product used for unknown indication
     Dosage: 2.9 MILLILITER, 2X/DAY (BID)

REACTIONS (4)
  - Myoclonic epilepsy [Recovered/Resolved]
  - Generalised tonic-clonic seizure [Recovered/Resolved]
  - Endotracheal intubation [Recovered/Resolved]
  - Extubation [Recovered/Resolved]

NARRATIVE: CASE EVENT DATE: 20220911
